FAERS Safety Report 6418643-2 (Version None)
Quarter: 2009Q4

REPORT INFORMATION
  Report Type: 
  Country: None (occurrence: None)
  Receive Date: 20091026
  Receipt Date: 20091013
  Transmission Date: 20100525
  Serious: Yes (Death, Life-Threatening, Disabling)
  Sender: FDA-Public Use
  Company Number: ADR40412009

PATIENT
  Age: 70 Year
  Sex: Male

DRUGS (21)
  1. SIMVASTATIN [Suspect]
     Indication: HYPERCHOLESTEROLAEMIA
     Dosage: 40 MG
     Route: 048
     Dates: start: 20050101, end: 20080912
  2. AMITRIPTYLINE [Concomitant]
  3. ASPIRIN [Concomitant]
  4. CLARITHROMYCIN [Concomitant]
  5. COSOPT [Concomitant]
  6. DICLOFENAC [Concomitant]
  7. ERYTHROMYCIN [Concomitant]
  8. FENTANYL [Concomitant]
  9. FLUCLOXACILLIN [Concomitant]
  10. GABAPENTIN [Concomitant]
  11. GLUCOSAMINE [Concomitant]
  12. LACTULOSE [Concomitant]
  13. LISINOPRIL [Concomitant]
  14. MAGNESIUM HYDROXIDE TAB [Concomitant]
  15. NULYTELY [Concomitant]
  16. PARACETAMOL [Concomitant]
  17. SENNA [Concomitant]
  18. SODIUM FUSIDATE [Concomitant]
  19. SPIRIVA [Concomitant]
  20. TRAMADOL HCL [Concomitant]
  21. XALATAN [Concomitant]

REACTIONS (4)
  - MUSCULAR WEAKNESS [None]
  - RENAL FAILURE ACUTE [None]
  - RESPIRATORY DISORDER [None]
  - RHABDOMYOLYSIS [None]
